FAERS Safety Report 6840284-3 (Version None)
Quarter: 2010Q2

REPORT INFORMATION
  Report Type: 
  Country: None (occurrence: None)
  Receive Date: 20100629
  Receipt Date: 20100422
  Transmission Date: 20101027
  Serious: No
  Sender: FDA-Public Use
  Company Number: US-WYE-H14780410

PATIENT
  Sex: Male

DRUGS (1)
  1. PRISTIQ [Suspect]
     Dosage: 50 MG, UNSPCIFIED FREQUENCY

REACTIONS (1)
  - LIBIDO INCREASED [None]
